FAERS Safety Report 14708631 (Version 2)
Quarter: 2018Q2

REPORT INFORMATION
  Report Type: Spontaneous
  Country: US (occurrence: US)
  Receive Date: 20180403
  Receipt Date: 20180427
  Transmission Date: 20180711
  Serious: No
  Sender: FDA-Public Use
  Company Number: US-GLAXOSMITHKLINE-US2018054856

PATIENT
  Age: 66 Year
  Sex: Male

DRUGS (3)
  1. ADVAIR DISKUS [Suspect]
     Active Substance: FLUTICASONE PROPIONATE\SALMETEROL XINAFOATE
     Indication: CHRONIC OBSTRUCTIVE PULMONARY DISEASE
     Dosage: 1 PUFF(S), QD
  2. PROVENTIL [Concomitant]
     Active Substance: ALBUTEROL
  3. ZYRTEC (OTC) [Concomitant]

REACTIONS (7)
  - Chest pain [Unknown]
  - Wheezing [Not Recovered/Not Resolved]
  - Intentional underdose [Unknown]
  - Intentional product misuse [Unknown]
  - Throat irritation [Unknown]
  - Product use in unapproved indication [Unknown]
  - Product quality issue [Unknown]

NARRATIVE: CASE EVENT DATE: 20180317
